FAERS Safety Report 24140158 (Version 1)
Quarter: 2024Q3

REPORT INFORMATION
  Report Type: Spontaneous
  Country: NL (occurrence: NL)
  Receive Date: 20240726
  Receipt Date: 20240726
  Transmission Date: 20241016
  Serious: Yes (Other)
  Sender: AUROBINDO
  Company Number: NL-AUROBINDO-AUR-APL-2024-036993

PATIENT
  Age: 62 Year
  Sex: Female

DRUGS (3)
  1. PREDNISONE [Suspect]
     Active Substance: PREDNISONE
     Indication: Myasthenic syndrome
     Dosage: HIGH-DOSE
     Route: 065
  2. AMIFAMPRIDINE [Concomitant]
     Active Substance: AMIFAMPRIDINE
     Indication: Product used for unknown indication
     Dosage: 20 MILLIGRAM, FOUR TIMES/DAY
     Route: 065
  3. Immunoglobulin [Concomitant]
     Indication: Product used for unknown indication
     Dosage: UNK
     Route: 042

REACTIONS (1)
  - Drug ineffective [Unknown]
